FAERS Safety Report 8646580 (Version 10)
Quarter: 2016Q4

REPORT INFORMATION
  Report Type: Spontaneous
  Country: US (occurrence: US)
  Receive Date: 20120702
  Receipt Date: 20161102
  Transmission Date: 20170207
  Serious: Yes (Hospitalization, Disabling, Other)
  Sender: FDA-Public Use
  Company Number: US-009507513-1207USA00064

PATIENT
  Sex: Female
  Weight: 62.59 kg

DRUGS (13)
  1. FOSAMAX [Suspect]
     Active Substance: ALENDRONATE SODIUM
     Indication: OSTEOPENIA
     Dosage: 10 MG, QD
     Route: 048
     Dates: start: 199801
  2. FOSAMAX [Suspect]
     Active Substance: ALENDRONATE SODIUM
     Indication: OSTEOPOROSIS
  3. ZOCOR [Concomitant]
     Active Substance: SIMVASTATIN
     Indication: HYPERLIPIDAEMIA
     Dosage: 5 MG, DAILY
     Route: 048
     Dates: start: 1992
  4. ALENDRONATE SODIUM. [Suspect]
     Active Substance: ALENDRONATE SODIUM
     Dosage: 10 MG, QD
     Route: 048
  5. OS-CAL + D [Concomitant]
     Indication: OSTEOPOROSIS
     Dosage: 500/250 MG BID WITH MEALS
     Route: 048
     Dates: start: 20070527
  6. LISINOPRIL. [Concomitant]
     Active Substance: LISINOPRIL
     Indication: HYPERTENSION
  7. CALCIUM (UNSPECIFIED) [Concomitant]
     Active Substance: CALCIUM
  8. VITAMINS (UNSPECIFIED) [Concomitant]
     Active Substance: VITAMINS
  9. PRILOSEC [Concomitant]
     Active Substance: OMEPRAZOLE MAGNESIUM
     Indication: GASTROOESOPHAGEAL REFLUX DISEASE
     Dosage: 20 MG, DAILY
     Route: 048
     Dates: start: 1992
  10. CARTIA XT [Concomitant]
     Active Substance: DILTIAZEM HYDROCHLORIDE
     Indication: ESSENTIAL HYPERTENSION
     Dosage: 240 MG, DAILY
     Route: 048
  11. DILTIAZEM HYDROCHLORIDE. [Concomitant]
     Active Substance: DILTIAZEM HYDROCHLORIDE
     Indication: HYPERTENSION
  12. CARDIZEM CD [Concomitant]
     Active Substance: DILTIAZEM HYDROCHLORIDE
     Indication: ESSENTIAL HYPERTENSION
     Dosage: 240 MG, DAILY
     Route: 048
  13. SIMVASTATIN. [Concomitant]
     Active Substance: SIMVASTATIN
     Indication: HYPERLIPIDAEMIA
     Dosage: 5 MG, HS
     Route: 048

REACTIONS (42)
  - Femur fracture [Recovering/Resolving]
  - Intramedullary rod insertion [Unknown]
  - Femur fracture [Not Recovered/Not Resolved]
  - Breast cancer [Unknown]
  - Hemiparesis [Unknown]
  - Spinal operation [Unknown]
  - Type 2 diabetes mellitus [Unknown]
  - Osteoarthritis [Unknown]
  - Nausea [Recovering/Resolving]
  - Muscle spasms [Unknown]
  - Intramedullary rod insertion [Recovering/Resolving]
  - Femur fracture [Not Recovered/Not Resolved]
  - Stress fracture [Not Recovered/Not Resolved]
  - Hip arthroplasty [Unknown]
  - Pubis fracture [Not Recovered/Not Resolved]
  - Calcium deficiency [Unknown]
  - Hypokalaemia [Unknown]
  - Vomiting [Recovering/Resolving]
  - Spinal fusion surgery [Unknown]
  - Fall [Unknown]
  - Spinal fracture [Unknown]
  - Fracture nonunion [Unknown]
  - Breast conserving surgery [Unknown]
  - Cardiac murmur [Unknown]
  - Bone density decreased [Not Recovered/Not Resolved]
  - Spinal fusion surgery [Unknown]
  - Post laminectomy syndrome [Unknown]
  - Spondylitis [Unknown]
  - Diastolic dysfunction [Unknown]
  - Electrocardiogram T wave amplitude decreased [Unknown]
  - Arthritis [Unknown]
  - Intramedullary rod insertion [Unknown]
  - Fracture [Recovering/Resolving]
  - Pubis fracture [Recovered/Resolved]
  - Epidermoid cyst excision [Unknown]
  - Back pain [Not Recovered/Not Resolved]
  - Blood urine present [Unknown]
  - Osteoporosis [Not Recovered/Not Resolved]
  - Intramedullary rod insertion [Unknown]
  - Shock [Unknown]
  - Sleep apnoea syndrome [Unknown]
  - Arthropathy [Unknown]

NARRATIVE: CASE EVENT DATE: 2001
